FAERS Safety Report 8297842-1 (Version None)
Quarter: 2012Q2

REPORT INFORMATION
  Report Type: 
  Country: None (occurrence: None)
  Receive Date: 20120419
  Receipt Date: 20120411
  Transmission Date: 20120825
  Serious: Yes (Hospitalization, Other)
  Sender: FDA-Public Use
  Company Number: NZ-B.I. PHARMACEUTICALS,INC./RIDGEFIELD-2011-AU-01242AU

PATIENT
  Age: 84 Year
  Sex: Male
  Weight: 73 kg

DRUGS (7)
  1. PRADAXA [Suspect]
     Indication: ATRIAL FIBRILLATION
     Dosage: 220 MG
  2. CILAZAPRIL [Concomitant]
  3. METOPROLOL TARTRATE [Concomitant]
  4. AMLODIPINE [Concomitant]
  5. LEVOTHYROXINE SODIUM [Concomitant]
  6. FUROSEMIDE [Concomitant]
  7. FERRO TAB [Concomitant]

REACTIONS (7)
  - HAEMOGLOBIN DECREASED [None]
  - HAEMORRHAGE [None]
  - OCCUPATIONAL THERAPY [None]
  - FEMORAL NECK FRACTURE [None]
  - STRESS ULCER [None]
  - COAGULATION TEST ABNORMAL [None]
  - GASTROINTESTINAL HAEMORRHAGE [None]
